FAERS Safety Report 6999541-2 (Version None)
Quarter: 2010Q3

REPORT INFORMATION
  Report Type: 
  Country: None (occurrence: None)
  Receive Date: 20100920
  Receipt Date: 20100105
  Transmission Date: 20110219
  Serious: Yes (Hospitalization)
  Sender: FDA-Public Use
  Company Number: US-ASTRAZENECA-2010SE00460

PATIENT
  Age: 63 Year
  Sex: Male

DRUGS (4)
  1. SEROQUEL XR [Suspect]
     Route: 048
  2. STATIN [Concomitant]
  3. LAMICTAL [Concomitant]
  4. SERZONE [Concomitant]

REACTIONS (1)
  - HEPATIC ENZYME INCREASED [None]
